FAERS Safety Report 25374492 (Version 1)
Quarter: 2025Q2

REPORT INFORMATION
  Report Type: Spontaneous
  Country: US (occurrence: US)
  Receive Date: 20250529
  Receipt Date: 20250529
  Transmission Date: 20250716
  Serious: Yes (Hospitalization)
  Sender: MYLAN
  Company Number: US-MYLANLABS-2025M1045205

PATIENT
  Age: 50 Year
  Sex: Male

DRUGS (28)
  1. MOXIFLOXACIN [Suspect]
     Active Substance: MOXIFLOXACIN
     Indication: Ulcerative keratitis
  2. MOXIFLOXACIN [Suspect]
     Active Substance: MOXIFLOXACIN
     Route: 061
  3. MOXIFLOXACIN [Suspect]
     Active Substance: MOXIFLOXACIN
     Route: 061
  4. MOXIFLOXACIN [Suspect]
     Active Substance: MOXIFLOXACIN
  5. DOXYCYCLINE [Concomitant]
     Active Substance: DOXYCYCLINE
     Indication: Ulcerative keratitis
     Dosage: 100 MILLIGRAM, BID
  6. DOXYCYCLINE [Concomitant]
     Active Substance: DOXYCYCLINE
     Dosage: 100 MILLIGRAM, BID
  7. DOXYCYCLINE [Concomitant]
     Active Substance: DOXYCYCLINE
     Dosage: 100 MILLIGRAM, BID
     Route: 048
  8. DOXYCYCLINE [Concomitant]
     Active Substance: DOXYCYCLINE
     Dosage: 100 MILLIGRAM, BID
     Route: 048
  9. DOXYCYCLINE [Concomitant]
     Active Substance: DOXYCYCLINE
  10. DOXYCYCLINE [Concomitant]
     Active Substance: DOXYCYCLINE
  11. DOXYCYCLINE [Concomitant]
     Active Substance: DOXYCYCLINE
     Route: 065
  12. DOXYCYCLINE [Concomitant]
     Active Substance: DOXYCYCLINE
     Route: 065
  13. VITAMIN C [Concomitant]
     Active Substance: ASCORBIC ACID
     Indication: Ulcerative keratitis
     Dosage: 1000 MILLIGRAM, QD
  14. VITAMIN C [Concomitant]
     Active Substance: ASCORBIC ACID
     Dosage: 1000 MILLIGRAM, QD
  15. VITAMIN C [Concomitant]
     Active Substance: ASCORBIC ACID
     Dosage: 1000 MILLIGRAM, QD
     Route: 065
  16. VITAMIN C [Concomitant]
     Active Substance: ASCORBIC ACID
     Dosage: 1000 MILLIGRAM, QD
     Route: 065
  17. VITAMIN C [Concomitant]
     Active Substance: ASCORBIC ACID
  18. VITAMIN C [Concomitant]
     Active Substance: ASCORBIC ACID
  19. VITAMIN C [Concomitant]
     Active Substance: ASCORBIC ACID
     Route: 065
  20. VITAMIN C [Concomitant]
     Active Substance: ASCORBIC ACID
     Route: 065
  21. LOTEPREDNOL [Concomitant]
     Active Substance: LOTEPREDNOL
     Indication: Keratitis
  22. LOTEPREDNOL [Concomitant]
     Active Substance: LOTEPREDNOL
     Route: 065
  23. LOTEPREDNOL [Concomitant]
     Active Substance: LOTEPREDNOL
     Route: 065
  24. LOTEPREDNOL [Concomitant]
     Active Substance: LOTEPREDNOL
  25. CIPROFLOXACIN [Concomitant]
     Active Substance: CIPROFLOXACIN
     Indication: Product used for unknown indication
  26. CIPROFLOXACIN [Concomitant]
     Active Substance: CIPROFLOXACIN
     Route: 065
  27. CIPROFLOXACIN [Concomitant]
     Active Substance: CIPROFLOXACIN
     Route: 065
  28. CIPROFLOXACIN [Concomitant]
     Active Substance: CIPROFLOXACIN

REACTIONS (2)
  - Drug ineffective for unapproved indication [Unknown]
  - Off label use [Unknown]
